FAERS Safety Report 4886400-4 (Version None)
Quarter: 2006Q1

REPORT INFORMATION
  Report Type: 
  Country: None (occurrence: None)
  Receive Date: 20060118
  Receipt Date: 20051129
  Transmission Date: 20060701
  Serious: Yes (Hospitalization)
  Sender: FDA-Public Use
  Company Number: US200511003152

PATIENT
  Age: 77 Year
  Sex: Male

DRUGS (18)
  1. PEMETREXED (PEMETREXED) VIAL [Suspect]
     Indication: NON-SMALL CELL LUNG CANCER
     Dosage: 500 MG/M2, OTHER, INTRAVENOUS
     Route: 042
     Dates: start: 20051024
  2. SYNTHROID [Concomitant]
  3. FUROSEMIDE [Concomitant]
  4. DARVOCET-N (PROPOXYPHENE NAPSYLATE UNKNOWN MANUFACTURER) [Concomitant]
  5. NEXIUM /UNK (ESOMEPRAZOLE) [Concomitant]
  6. DIGOXIN (DIGOXIN UNKNOWN MANUFACTURER) [Concomitant]
  7. FOLIC ACID [Concomitant]
  8. POTASSIUM CHLORIDE [Concomitant]
  9. FLOMAX [Concomitant]
  10. ALBUTEROL [Concomitant]
  11. ALBUTEROL (SALBUTAMOL) AEROSOL (SPRAY AND INHALATION) [Concomitant]
  12. IPRATROPIUM (IPRATROPIUM) (SPRAY AND INHALATION) [Concomitant]
  13. OXYGEN (OXYGEN) [Concomitant]
  14. BUSPAR /AUS/(BUSPIRONE HYDROCHLORIDE) [Concomitant]
  15. IMODIUM [Concomitant]
  16. FERROUS SULFATE TAB [Concomitant]
  17. ARANESP/UNK (DARBEPOETIN ALFA) [Concomitant]
  18. SLO-MAG (MAGNESIUM CHLORIDE ANHYDROUS) [Concomitant]

REACTIONS (7)
  - BRONCHIECTASIS [None]
  - CONDITION AGGRAVATED [None]
  - DIARRHOEA [None]
  - HAEMOGLOBIN DECREASED [None]
  - LUNG CONSOLIDATION [None]
  - PLEURAL EFFUSION [None]
  - PURULENCE [None]
